FAERS Safety Report 8214133-5 (Version None)
Quarter: 2012Q1

REPORT INFORMATION
  Report Type: 
  Country: None (occurrence: None)
  Receive Date: 20120316
  Receipt Date: 20120308
  Transmission Date: 20120608
  Serious: Yes (Hospitalization)
  Sender: FDA-Public Use
  Company Number: US-BAYER-2011-119814

PATIENT
  Age: 15 Year
  Sex: Female

DRUGS (12)
  1. YAZ [Suspect]
  2. ADVAIR DISKUS 100/50 [Concomitant]
     Dosage: 2 PUFF(S), UNK
     Route: 055
  3. VERAMYST [Concomitant]
  4. YASMIN [Suspect]
  5. ALLEGRA [Concomitant]
     Dosage: 30 MG, BID
     Route: 048
  6. KETRORLAC [Concomitant]
     Dosage: UNK
     Dates: start: 20091009
  7. BACTRIM [Concomitant]
     Indication: PNEUMONIA
  8. OMNICEF [Concomitant]
     Indication: PNEUMONIA
  9. SINGULAIR [Concomitant]
     Dosage: UNK
     Route: 048
  10. FLUCONAZOLE [Concomitant]
     Dosage: 150 MG, UNK
     Dates: start: 20091020
  11. SULFAMETHOXAZOLE + TRIMETHOPRIM [Concomitant]
     Dosage: UNK
     Dates: start: 20091010
  12. TORADOL [Concomitant]

REACTIONS (2)
  - INJURY [None]
  - PULMONARY EMBOLISM [None]
